FAERS Safety Report 18044066 (Version 1)
Quarter: 2020Q3

REPORT INFORMATION
  Report Type: Spontaneous
  Country: US (occurrence: US)
  Receive Date: 20200720
  Receipt Date: 20200720
  Transmission Date: 20201103
  Serious: No
  Sender: FDA-Public Use
  Company Number: US-SA-2020SA185101

PATIENT

DRUGS (4)
  1. ISODOL [Concomitant]
  2. INSULIN [Concomitant]
     Active Substance: INSULIN NOS
  3. METOPROLOL. [Concomitant]
     Active Substance: METOPROLOL
  4. PLAVIX [Suspect]
     Active Substance: CLOPIDOGREL BISULFATE
     Indication: ARTERIAL THROMBOSIS
     Dosage: 1 DF, QD
     Route: 048
     Dates: start: 200805

REACTIONS (5)
  - Asthenia [Unknown]
  - Cough [Unknown]
  - Muscle spasms [Unknown]
  - Angle closure glaucoma [Unknown]
  - Sinus disorder [Unknown]

NARRATIVE: CASE EVENT DATE: 20200709
